FAERS Safety Report 9750537 (Version 1)
Quarter: 2013Q4

REPORT INFORMATION
  Report Type: Spontaneous
  Country: US (occurrence: US)
  Receive Date: 20131212
  Receipt Date: 20131212
  Transmission Date: 20140711
  Serious: Yes (Other)
  Sender: FDA-Public Use
  Company Number: US-FRI-1000052134

PATIENT
  Age: 57 Year
  Sex: Male

DRUGS (5)
  1. BYSTOLIC [Suspect]
     Dosage: 10MG
     Route: 048
     Dates: start: 20131107
  2. HYDROCHLOROTHIAZIDE [Concomitant]
     Dosage: 50MG
  3. LISINOPRIL [Concomitant]
     Dosage: 40MG
  4. ALLOPURINOL [Concomitant]
     Dosage: 100MG
  5. INDOMETHACIN [Concomitant]
     Dosage: 50MG EVERY 8 HOURS AS NEEDED

REACTIONS (2)
  - Dyspnoea [Recovered/Resolved]
  - Brain natriuretic peptide increased [Recovered/Resolved]
